FAERS Safety Report 5164321-X (Version None)
Quarter: 2006Q4

REPORT INFORMATION
  Report Type: 
  Country: None (occurrence: None)
  Receive Date: 20061127
  Receipt Date: 20061127
  Transmission Date: 20070319
  Serious: Yes (Hospitalization)
  Sender: FDA-Public Use
  Company Number: None

PATIENT
  Age: 73 Year
  Sex: Female

DRUGS (11)
  1. LYSODREN [Suspect]
     Indication: ADRENAL GLAND CANCER METASTATIC
     Dosage: 1500 MG IN AM, 1500 MG AT NOON 2000MG AT NIGHT PO
     Route: 048
  2. LYSODREN [Suspect]
     Indication: METASTASES TO LIVER
     Dosage: 1500 MG IN AM, 1500 MG AT NOON 2000MG AT NIGHT PO
     Route: 048
  3. DIOVAN [Concomitant]
  4. CHLORTHALIDONE [Concomitant]
  5. ATENOLOL [Concomitant]
  6. NEXIUM [Concomitant]
  7. CORTEF [Concomitant]
  8. OS-CAL [Concomitant]
  9. VITAMIN [Concomitant]
  10. ATIVAN [Concomitant]
  11. ASPIRIN [Concomitant]

REACTIONS (1)
  - ANAEMIA [None]
